FAERS Safety Report 16304937 (Version 1)
Quarter: 2019Q2

REPORT INFORMATION
  Report Type: Spontaneous
  Country: ES (occurrence: ES)
  Receive Date: 20190513
  Receipt Date: 20190513
  Transmission Date: 20190711
  Serious: Yes (Other)
  Sender: FDA-Public Use
  Company Number: ES-PFIZER INC-2019195906

PATIENT
  Age: 66 Year
  Sex: Male

DRUGS (2)
  1. BESITRAN [Suspect]
     Active Substance: SERTRALINE HYDROCHLORIDE
     Dosage: HALF A PILL
     Dates: start: 2019
  2. BESITRAN [Suspect]
     Active Substance: SERTRALINE HYDROCHLORIDE
     Dosage: 50MG (ONE QUARTER)

REACTIONS (3)
  - Hypertension [Unknown]
  - Blindness [Unknown]
  - Anxiety [Unknown]
